FAERS Safety Report 9712311 (Version 1)
Quarter: 2013Q4

REPORT INFORMATION
  Report Type: Spontaneous
  Country: US (occurrence: US)
  Receive Date: 20131126
  Receipt Date: 20131126
  Transmission Date: 20140711
  Serious: No
  Sender: FDA-Public Use
  Company Number: US-BRISTOL-MYERS SQUIBB COMPANY-18862953

PATIENT
  Age: 65 Year
  Sex: Female
  Weight: 66.66 kg

DRUGS (5)
  1. BYDUREON [Suspect]
  2. GLUCOPHAGE [Concomitant]
  3. EFFEXOR XR [Concomitant]
  4. ZIAC [Concomitant]
  5. VICTOZA [Concomitant]

REACTIONS (1)
  - Injection site mass [Unknown]
